FAERS Safety Report 5636325-1 (Version None)
Quarter: 2008Q1

REPORT INFORMATION
  Report Type: 
  Country: None (occurrence: None)
  Receive Date: 20080220
  Receipt Date: 20080220
  Transmission Date: 20080703
  Serious: No
  Sender: FDA-Public Use
  Company Number: None

PATIENT
  Sex: Male
  Weight: 43.0917 kg

DRUGS (4)
  1. MS CONTIN [Suspect]
     Indication: EHLERS-DANLOS SYNDROME
     Dosage: 15 MG ONCE BID PO
     Route: 048
     Dates: start: 19980216, end: 20051101
  2. MS CONTIN [Suspect]
     Indication: PAIN
     Dosage: 15 MG ONCE BID PO
     Route: 048
     Dates: start: 19980216, end: 20051101
  3. MS CONTIN [Suspect]
     Indication: EHLERS-DANLOS SYNDROME
     Dosage: 30 MG ONCE BID PO
     Route: 048
     Dates: start: 19980216, end: 20051101
  4. MS CONTIN [Suspect]
     Indication: PAIN
     Dosage: 30 MG ONCE BID PO
     Route: 048
     Dates: start: 19980216, end: 20051101

REACTIONS (1)
  - DRUG INEFFECTIVE [None]
